FAERS Safety Report 17005451 (Version 1)
Quarter: 2019Q4

REPORT INFORMATION
  Report Type: Spontaneous
  Country: US (occurrence: US)
  Receive Date: 20190926
  Receipt Date: 20190926
  Transmission Date: 20200122
  Serious: Yes (Hospitalization)
  Sender: FDA-Public Use
  Company Number: None

PATIENT
  Sex: Male

DRUGS (18)
  1. COLESTIPOL [Concomitant]
     Active Substance: COLESTIPOL
  2. GENTAMICIN. [Concomitant]
     Active Substance: GENTAMICIN
  3. APAP/CODEINE [Concomitant]
     Active Substance: ACETAMINOPHEN\CODEINE PHOSPHATE
  4. CIPROFLOXACIN. [Concomitant]
     Active Substance: CIPROFLOXACIN
  5. DILTIAZEM. [Concomitant]
     Active Substance: DILTIAZEM
  6. FINACEA [Concomitant]
     Active Substance: AZELAIC ACID
  7. POTCL [Concomitant]
  8. LEVOTHYROXIN [Concomitant]
     Active Substance: LEVOTHYROXINE
  9. CLONIDINE. [Concomitant]
     Active Substance: CLONIDINE
  10. HUMALOG [Concomitant]
     Active Substance: INSULIN LISPRO
  11. TOLTERODINE [Concomitant]
     Active Substance: TOLTERODINE
  12. LOSARTAN. [Concomitant]
     Active Substance: LOSARTAN
  13. NAPROXEN. [Concomitant]
     Active Substance: NAPROXEN
  14. ENBREL [Suspect]
     Active Substance: ETANERCEPT
     Indication: PSORIASIS
     Route: 058
     Dates: start: 20151204
  15. BACLOFEN. [Concomitant]
     Active Substance: BACLOFEN
  16. CEROVITE [Concomitant]
     Active Substance: FOLIC ACID\IRON
  17. BACTRIM [Concomitant]
     Active Substance: SULFAMETHOXAZOLE\TRIMETHOPRIM
  18. FUROSEMIDE. [Concomitant]
     Active Substance: FUROSEMIDE

REACTIONS (1)
  - Hospitalisation [None]
